FAERS Safety Report 9840022 (Version 1)
Quarter: 2014Q1

REPORT INFORMATION
  Report Type: Spontaneous
  Country: US (occurrence: None)
  Receive Date: 20140117
  Receipt Date: 20140117
  Transmission Date: 20141002
  Serious: Yes (Death)
  Sender: FDA-Public Use
  Company Number: None

PATIENT
  Sex: Female

DRUGS (1)
  1. GRANISETRON HYDROCHLORIDE [Suspect]
     Indication: UTERINE CANCER
     Route: 030
     Dates: start: 20131105, end: 20141115

REACTIONS (1)
  - Death [None]
